FAERS Safety Report 10245072 (Version 1)
Quarter: 2014Q2

REPORT INFORMATION
  Report Type: Spontaneous
  Country: US (occurrence: US)
  Receive Date: 20140618
  Receipt Date: 20140618
  Transmission Date: 20141212
  Serious: No
  Sender: FDA-Public Use
  Company Number: US-GALDERMA-US14000767

PATIENT
  Age: 60 Year
  Sex: Female

DRUGS (9)
  1. MIRVASO (BRIMONIDINE) TOPICAL GEL, 0.33% [Suspect]
     Indication: ROSACEA
     Dosage: 0.33%
     Route: 061
     Dates: start: 201402, end: 20140225
  2. ZOLOFT (SERTRALINE) [Concomitant]
     Indication: DEPRESSION
     Route: 048
  3. WELLBUTRIN XL [Concomitant]
     Indication: DEPRESSION
     Route: 048
  4. AMBIEN CR (ZOLPIDEM) [Concomitant]
     Indication: SLEEP DISORDER
     Dosage: 12.5 MG
     Route: 048
  5. XANAX (ALPRAZOLAM) [Concomitant]
     Indication: PANIC ATTACK
     Dosage: 0.5 MG
     Route: 048
  6. BIOTIN [Concomitant]
     Indication: SUPPLEMENTATION THERAPY
     Route: 048
  7. LOSARTAN [Concomitant]
     Indication: HYPERTENSION
     Route: 048
  8. ESTEE LAUDER PERFECTIONIST [Concomitant]
     Indication: THERAPEUTIC SKIN CARE TOPICAL
     Route: 061
  9. NEOCUTIS [Concomitant]
     Indication: DRY SKIN PROPHYLAXIS
     Route: 061

REACTIONS (10)
  - Condition aggravated [Recovering/Resolving]
  - Rash erythematous [Recovering/Resolving]
  - Capillary fragility [Recovering/Resolving]
  - Depression [Recovering/Resolving]
  - Crying [Recovering/Resolving]
  - Dry skin [Recovering/Resolving]
  - Rash papular [Recovering/Resolving]
  - Flushing [Recovering/Resolving]
  - Erythema [Recovering/Resolving]
  - Off label use [Recovered/Resolved]
